FAERS Safety Report 9249684 (Version 3)
Quarter: 2016Q2

REPORT INFORMATION
  Report Type: Spontaneous
  Country: US (occurrence: US)
  Receive Date: 20130423
  Receipt Date: 20160405
  Transmission Date: 20160815
  Serious: No
  Sender: FDA-Public Use
  Company Number: US-009507513-1304USA008289

PATIENT
  Sex: Male
  Weight: 69.84 kg

DRUGS (2)
  1. PRINIVIL [Suspect]
     Active Substance: LISINOPRIL
     Route: 048
  2. PROPECIA [Suspect]
     Active Substance: FINASTERIDE
     Indication: ANDROGENETIC ALOPECIA
     Dosage: 1 MG, UNK
     Route: 048
     Dates: start: 20070505, end: 200908

REACTIONS (8)
  - Erectile dysfunction [Unknown]
  - Libido decreased [Unknown]
  - Depression [Not Recovered/Not Resolved]
  - Hypogonadism [Unknown]
  - Sexual dysfunction [Not Recovered/Not Resolved]
  - Appendicectomy [Unknown]
  - Cognitive disorder [Not Recovered/Not Resolved]
  - Hypertension [Unknown]

NARRATIVE: CASE EVENT DATE: 2008
